FAERS Safety Report 5178929-9 (Version None)
Quarter: 2006Q4

REPORT INFORMATION
  Report Type: 
  Country: None (occurrence: None)
  Receive Date: 20061213
  Receipt Date: 20061213
  Transmission Date: 20070319
  Serious: Yes (Life-Threatening, Hospitalization, Other)
  Sender: FDA-Public Use
  Company Number: None

PATIENT
  Age: 42 Year
  Sex: Male
  Weight: 77.1115 kg

DRUGS (4)
  1. STELAZINE [Suspect]
     Indication: CONVULSION
     Dosage: HAVE TO ORDER MED HISTORY
     Dates: start: 19900406, end: 19920720
  2. STELAZINE [Suspect]
     Indication: DRUG USE FOR UNKNOWN INDICATION
     Dosage: HAVE TO ORDER MED HISTORY
     Dates: start: 19900406, end: 19920720
  3. XANAX [Suspect]
     Indication: CONVULSION
     Dosage: HAVE TO ORDER MED HISTORY
     Dates: start: 19900406, end: 19920720
  4. XANAX [Suspect]
     Indication: DRUG USE FOR UNKNOWN INDICATION
     Dosage: HAVE TO ORDER MED HISTORY
     Dates: start: 19900406, end: 19920720

REACTIONS (9)
  - FACIAL SPASM [None]
  - FALL [None]
  - HEAD INJURY [None]
  - INNER EAR DISORDER [None]
  - LOSS OF CONSCIOUSNESS [None]
  - MIDDLE EAR DISORDER [None]
  - NERVOUS SYSTEM DISORDER [None]
  - SPEECH DISORDER [None]
  - TARDIVE DYSKINESIA [None]
